APPROVED DRUG PRODUCT: ZYMAR
Active Ingredient: GATIFLOXACIN
Strength: 0.3% **Federal Register determination that product was not discontinued or withdrawn for safety or effectiveness reasons**
Dosage Form/Route: SOLUTION/DROPS;OPHTHALMIC
Application: N021493 | Product #001
Applicant: ALLERGAN INC
Approved: Mar 28, 2003 | RLD: Yes | RS: No | Type: DISCN